FAERS Safety Report 22127571 (Version 1)
Quarter: 2023Q1

REPORT INFORMATION
  Report Type: Spontaneous
  Country: SI (occurrence: SI)
  Receive Date: 20230323
  Receipt Date: 20230323
  Transmission Date: 20230417
  Serious: Yes (Other)
  Sender: FDA-Public Use
  Company Number: SI-SLATE RUN PHARMACEUTICALS-23SI001524

PATIENT

DRUGS (11)
  1. VORICONAZOLE [Suspect]
     Active Substance: VORICONAZOLE
     Indication: Aspergillus infection
     Dosage: 4 MILLIGRAM PER KILOGRAM, QD
  2. VORICONAZOLE [Suspect]
     Active Substance: VORICONAZOLE
     Dosage: 6 MILLIGRAM PER KILOGRAM FOR TWO DOSES
  3. VORICONAZOLE [Suspect]
     Active Substance: VORICONAZOLE
     Dosage: UNK
  4. VORICONAZOLE [Suspect]
     Active Substance: VORICONAZOLE
     Dosage: UNK
     Route: 048
  5. VORICONAZOLE [Suspect]
     Active Substance: VORICONAZOLE
     Dosage: 300 MILLIGRAM, BID
  6. METHYLPREDNISOLONE [Concomitant]
     Active Substance: METHYLPREDNISOLONE
     Indication: Subacute hepatic failure
     Dosage: 8 MILLIGRAM
  7. METHYLPREDNISOLONE [Concomitant]
     Active Substance: METHYLPREDNISOLONE
     Dosage: 64 MILLIGRAM
  8. INSULIN NOS [Concomitant]
     Active Substance: INSULIN NOS
     Indication: Steroid diabetes
  9. AMPHOTERICIN B [Concomitant]
     Active Substance: AMPHOTERICIN B
     Indication: Aspergillus infection
     Dosage: 5 MILLIGRAM PER KILOGRAM, QD
     Route: 042
  10. AMPHOTERICIN B [Concomitant]
     Active Substance: AMPHOTERICIN B
     Dosage: UNK
  11. BUDESONIDE [Concomitant]
     Active Substance: BUDESONIDE
     Indication: Subacute hepatic failure

REACTIONS (4)
  - Peripheral ischaemia [Recovered/Resolved]
  - Drug-induced liver injury [Not Recovered/Not Resolved]
  - Dyspnoea [Recovered/Resolved]
  - Tachycardia [Recovered/Resolved]
